FAERS Safety Report 5835590-5 (Version None)
Quarter: 2008Q3

REPORT INFORMATION
  Report Type: 
  Country: None (occurrence: None)
  Receive Date: 20080728
  Receipt Date: 20080708
  Transmission Date: 20090109
  Serious: No
  Sender: FDA-Public Use
  Company Number: 2008US001499

PATIENT
  Age: 79 Year
  Sex: Male
  Weight: 78.6 kg

DRUGS (3)
  1. VAPRISOL [Suspect]
     Indication: HYPONATRAEMIA
     Dosage: 20 MG, UID/QD, PARENTERAL ; 40 MG, UID/QD, PARENTERAL
     Route: 051
     Dates: start: 20080527, end: 20080529
  2. VAPRISOL [Suspect]
     Indication: HYPONATRAEMIA
     Dosage: 20 MG, UID/QD, PARENTERAL ; 40 MG, UID/QD, PARENTERAL
     Route: 051
     Dates: start: 20080530
  3. DEMECLOCYCLINE HCL [Concomitant]

REACTIONS (4)
  - BLOOD OSMOLARITY ABNORMAL [None]
  - BLOOD SODIUM ABNORMAL [None]
  - DRUG INEFFECTIVE [None]
  - THERAPEUTIC RESPONSE DELAYED [None]
